FAERS Safety Report 6773916-9 (Version None)
Quarter: 2010Q2

REPORT INFORMATION
  Report Type: 
  Country: None (occurrence: None)
  Receive Date: 20100615
  Receipt Date: 20100615
  Transmission Date: 20101027
  Serious: No
  Sender: FDA-Public Use
  Company Number: None

PATIENT
  Sex: Male
  Weight: 86.1834 kg

DRUGS (1)
  1. OXYCODONE HCL [Suspect]
     Indication: BACK PAIN
     Dosage: 7.5/325 2 A DAY
     Dates: start: 20020101

REACTIONS (2)
  - DRUG SCREEN NEGATIVE [None]
  - PRODUCT COUNTERFEIT [None]
